FAERS Safety Report 15710473 (Version 2)
Quarter: 2018Q4

REPORT INFORMATION
  Report Type: Spontaneous
  Country: JP (occurrence: JP)
  Receive Date: 20181211
  Receipt Date: 20181211
  Transmission Date: 20190205
  Serious: Yes (Other)
  Sender: FDA-Public Use
  Company Number: PHJP2016JP031017

PATIENT
  Age: 75 Year
  Sex: Male

DRUGS (4)
  1. CICLOSPORIN [Suspect]
     Active Substance: CYCLOSPORINE
     Indication: CHRONIC INFLAMMATORY DEMYELINATING POLYRADICULONEUROPATHY
     Dosage: BLOOD CONCENTRATION TROUGH WAS MAINTAINED AT 60-150 NG/ML
     Route: 048
     Dates: start: 200506, end: 201305
  2. TACROLIMUS. [Suspect]
     Active Substance: TACROLIMUS
     Indication: CHRONIC INFLAMMATORY DEMYELINATING POLYRADICULONEUROPATHY
     Dosage: UNK(BLOOD CONCENTRATION ABOUT 12 HR AFTER ORAL ADMINISTRATION WAS 35 NG/ML)
     Route: 048
     Dates: start: 201310, end: 201411
  3. IMMUNOGLOBULIN G HUMAN [Concomitant]
     Active Substance: HUMAN IMMUNOGLOBULIN G
     Dosage: IVIG WAS PERFORMED WHENEVER THE PATIENT EXPERIENCED DIFFICULTY STANDING UNAIDED
     Route: 042
  4. IMMUNOGLOBULIN G HUMAN [Concomitant]
     Active Substance: HUMAN IMMUNOGLOBULIN G
     Indication: CHRONIC INFLAMMATORY DEMYELINATING POLYRADICULONEUROPATHY
     Dosage: 2 G/KG, UNK
     Route: 042

REACTIONS (4)
  - Disease progression [Recovered/Resolved]
  - Glomerular filtration rate decreased [Unknown]
  - Off label use [Recovered/Resolved]
  - Renal disorder [Recovered/Resolved]
